FAERS Safety Report 8245513-X (Version None)
Quarter: 2012Q1

REPORT INFORMATION
  Report Type: 
  Country: None (occurrence: None)
  Receive Date: 20120329
  Receipt Date: 20120320
  Transmission Date: 20120608
  Serious: Yes (Hospitalization)
  Sender: FDA-Public Use
  Company Number: MX-ASTRAZENECA-2012SE17362

PATIENT
  Age: 56 Year
  Sex: Female
  Weight: 72 kg

DRUGS (5)
  1. ARIMIDEX [Suspect]
     Route: 048
     Dates: start: 20110601, end: 20111212
  2. ENALAPRIL [Concomitant]
     Route: 048
     Dates: start: 20070101, end: 20120113
  3. ARIMIDEX [Suspect]
     Indication: BREAST CANCER
     Route: 048
     Dates: start: 20110501, end: 20110601
  4. TAMOXIFEN CITRATE [Concomitant]
     Indication: BREAST CANCER
     Route: 048
     Dates: start: 20100101, end: 20100101
  5. CAPTOPRIL [Concomitant]
     Indication: HYPERTENSION
     Route: 048
     Dates: start: 20120114, end: 20120121

REACTIONS (14)
  - KIDNEY INFECTION [None]
  - RECTAL HAEMORRHAGE [None]
  - VAGINAL INFLAMMATION [None]
  - DYSPHAGIA [None]
  - VAGINAL HAEMORRHAGE [None]
  - STEVENS-JOHNSON SYNDROME [None]
  - BURNING SENSATION [None]
  - TOOTH DISORDER [None]
  - HYPERTENSION [None]
  - VASCULITIS [None]
  - ANORECTAL DISCOMFORT [None]
  - ANAL PRURITUS [None]
  - FEELING ABNORMAL [None]
  - CYANOSIS [None]
